FAERS Safety Report 10647220 (Version 1)
Quarter: 2014Q4

REPORT INFORMATION
  Report Type: Spontaneous
  Country: US (occurrence: US)
  Receive Date: 20141211
  Receipt Date: 20141211
  Transmission Date: 20150529
  Serious: No
  Sender: FDA-Public Use
  Company Number: US-PFIZER INC-2014338717

PATIENT
  Age: 91 Year
  Sex: Female
  Weight: 54 kg

DRUGS (5)
  1. CADUET [Suspect]
     Active Substance: AMLODIPINE BESYLATE\ATORVASTATIN CALCIUM
     Indication: HYPERTENSION
     Dosage: AMLODIPINE BESILATE 5 MG/ ATORVASTATIN CALCIUM 10MG, UNK
     Dates: start: 201212
  2. SUMATRIPTAN. [Concomitant]
     Active Substance: SUMATRIPTAN
     Dosage: UNK
  3. LIPITOR [Concomitant]
     Active Substance: ATORVASTATIN CALCIUM
     Dosage: UNK
  4. CADUET [Suspect]
     Active Substance: AMLODIPINE BESYLATE\ATORVASTATIN CALCIUM
     Dosage: AMLODIPINE BESILATE 10 MG/ ATORVASTATIN CALCIUM 10MG, 1X/DAY
  5. TYLENOL-CODEINE [Concomitant]
     Dosage: UNK

REACTIONS (1)
  - Swelling [Unknown]
